FAERS Safety Report 6185512-5 (Version None)
Quarter: 2009Q2

REPORT INFORMATION
  Report Type: 
  Country: None (occurrence: None)
  Receive Date: 20090511
  Receipt Date: 20090504
  Transmission Date: 20091009
  Serious: Yes (Hospitalization, Other)
  Sender: FDA-Public Use
  Company Number: DE-ABBOTT-09P-062-0569569-00

PATIENT
  Sex: Male
  Weight: 103 kg

DRUGS (7)
  1. HUMIRA [Suspect]
     Indication: PSORIASIS
     Route: 058
     Dates: end: 20080901
  2. HUMIRA [Suspect]
     Dates: start: 20080421, end: 20080804
  3. BUPRENORPHINE HCL [Concomitant]
     Indication: PAIN MANAGEMENT
     Route: 062
  4. ESOMEPRAZOLE MAGNESIUM [Concomitant]
     Indication: DRUG USE FOR UNKNOWN INDICATION
     Route: 048
  5. SPIRONOLACTONE [Concomitant]
     Indication: DRUG USE FOR UNKNOWN INDICATION
     Route: 048
  6. HALOPERIDOL [Concomitant]
     Indication: DRUG USE FOR UNKNOWN INDICATION
     Route: 048
  7. FUROSEMIDE [Concomitant]
     Indication: DRUG USE FOR UNKNOWN INDICATION

REACTIONS (6)
  - ABDOMINAL PAIN [None]
  - GASTROINTESTINAL NEOPLASM [None]
  - INTESTINAL OBSTRUCTION [None]
  - PERITONITIS [None]
  - RETROPERITONEAL INFECTION [None]
  - SEPSIS [None]
